FAERS Safety Report 6968710-X (Version None)
Quarter: 2010Q3

REPORT INFORMATION
  Report Type: 
  Country: None (occurrence: None)
  Receive Date: 20100901
  Receipt Date: 20100824
  Transmission Date: 20110219
  Serious: Yes (Other)
  Sender: FDA-Public Use
  Company Number: US-1183120

PATIENT
  Age: 69 Year
  Sex: Female

DRUGS (2)
  1. AZOPT [Suspect]
     Dosage: (OPHTHALMIC)
     Route: 047
     Dates: start: 20100101
  2. TRAVATAN [Suspect]
     Dosage: OPHTHALMIC
     Route: 047
     Dates: start: 20070101

REACTIONS (4)
  - BRONCHOSPASM [None]
  - CHEST PAIN [None]
  - EYE IRRITATION [None]
  - WHEEZING [None]
